FAERS Safety Report 7486632-5 (Version None)
Quarter: 2011Q2

REPORT INFORMATION
  Report Type: 
  Country: None (occurrence: None)
  Receive Date: 20110517
  Receipt Date: 20100625
  Transmission Date: 20111010
  Serious: No
  Sender: FDA-Public Use
  Company Number: US-NOVEN-ALL1-2010-03624

PATIENT

DRUGS (2)
  1. DAYTRANA [Suspect]
     Dosage: 40 MG, 1X/DAY:QD (ONE 10 MG PATCH + ONE 30 MG PATCH DAILY)
     Route: 062
     Dates: start: 20020101
  2. RITALIN [Concomitant]
     Dosage: 10 MG, 1X/DAY:QD
     Route: 048
     Dates: start: 20020101

REACTIONS (7)
  - DEPRESSION [None]
  - ANXIETY [None]
  - TIC [None]
  - PRODUCT QUALITY ISSUE [None]
  - DISTURBANCE IN ATTENTION [None]
  - OVERDOSE [None]
  - OFF LABEL USE [None]
